FAERS Safety Report 11414980 (Version 1)
Quarter: 2015Q3

REPORT INFORMATION
  Report Type: Spontaneous
  Country: AR (occurrence: AR)
  Receive Date: 20150825
  Receipt Date: 20150825
  Transmission Date: 20151125
  Serious: Yes (Hospitalization, Other)
  Sender: FDA-Public Use
  Company Number: AR-PFIZER INC-2015270369

PATIENT
  Age: 51 Year
  Sex: Male

DRUGS (1)
  1. SUTENT [Suspect]
     Active Substance: SUNITINIB MALATE
     Indication: METASTATIC RENAL CELL CARCINOMA
     Dosage: 37.5 MG, UNK
     Dates: start: 20150610

REACTIONS (2)
  - Dehydration [Recovered/Resolved]
  - Respiratory failure [Unknown]

NARRATIVE: CASE EVENT DATE: 201507
